FAERS Safety Report 11538481 (Version 2)
Quarter: 2015Q4

REPORT INFORMATION
  Report Type: Spontaneous
  Country: FR (occurrence: FR)
  Receive Date: 20150921
  Receipt Date: 20151130
  Transmission Date: 20160304
  Serious: Yes (Death)
  Sender: FDA-Public Use
  Company Number: 2015FR0517

PATIENT
  Age: 53 Year
  Sex: Female

DRUGS (5)
  1. HYDROXYCHLOROQUINE [Concomitant]
     Active Substance: HYDROXYCHLOROQUINE
  2. PREDNISONE. [Concomitant]
     Active Substance: PREDNISONE
     Dosage: 5 MG
  3. KINERET [Suspect]
     Active Substance: ANAKINRA
     Indication: DERMATOMYOSITIS
     Dosage: 100 MG
     Route: 058
     Dates: start: 201104
  4. IVIG [Concomitant]
     Active Substance: HUMAN IMMUNOGLOBULIN G
  5. METHOTREXATE [Concomitant]
     Active Substance: METHOTREXATE

REACTIONS (1)
  - Pneumonia aspiration [Fatal]
